FAERS Safety Report 4529619-4 (Version None)
Quarter: 2004Q4

REPORT INFORMATION
  Report Type: 
  Country: None (occurrence: None)
  Receive Date: 20041214
  Receipt Date: 20041202
  Transmission Date: 20050328
  Serious: Yes (Death)
  Sender: FDA-Public Use
  Company Number: US-2004-028624

PATIENT
  Age: 62 Year
  Sex: Male
  Weight: 92.5 kg

DRUGS (10)
  1. CAMPATH [Suspect]
     Indication: CHRONIC LYMPHOCYTIC LEUKAEMIA
     Dosage: SEE IMAGE
     Route: 042
     Dates: start: 20031006, end: 20031007
  2. CAMPATH [Suspect]
     Indication: CHRONIC LYMPHOCYTIC LEUKAEMIA
     Dosage: SEE IMAGE
     Route: 042
     Dates: start: 20031009, end: 20031009
  3. CAMPATH [Suspect]
     Indication: CHRONIC LYMPHOCYTIC LEUKAEMIA
     Dosage: SEE IMAGE
     Route: 042
     Dates: start: 20031010, end: 20031224
  4. ATIVAN [Concomitant]
  5. DIPHENHYDRAMINE HCL [Concomitant]
  6. TYLENOL (CAPLET) [Concomitant]
  7. DECARDRON /NET/ (DEXAMETHASONE SODIUM PHOSPHATE) [Concomitant]
  8. BACTRIM DS [Concomitant]
  9. FLAGYL (METRONIDAZOLE BENZOATE) [Concomitant]
  10. ACYCLOVIR [Concomitant]

REACTIONS (6)
  - ABDOMINAL PAIN [None]
  - ASCITES [None]
  - IMMUNOSUPPRESSION [None]
  - METASTASES TO LIVER [None]
  - METASTASES TO SPLEEN [None]
  - METASTATIC MALIGNANT MELANOMA [None]
